FAERS Safety Report 8784836 (Version 2)
Quarter: 2013Q1

REPORT INFORMATION
  Report Type: Spontaneous
  Country: FR (occurrence: FR)
  Receive Date: 20120914
  Receipt Date: 20121109
  Transmission Date: 20140127
  Serious: Yes (Death, Life-Threatening)
  Sender: FDA-Public Use
  Company Number: FR-ASTRAZENECA-2012SE71345

PATIENT
  Age: 25749 Day
  Sex: Male

DRUGS (3)
  1. INEXIUM [Suspect]
     Dosage: DAILY
     Route: 048
     Dates: end: 20120818
  2. SMECTA [Suspect]
     Route: 048
     Dates: end: 20120818
  3. SUTENT [Suspect]
     Route: 048
     Dates: start: 201110, end: 20120816

REACTIONS (1)
  - Hepatitis fulminant [Fatal]
